FAERS Safety Report 7876186-3 (Version None)
Quarter: 2011Q4

REPORT INFORMATION
  Report Type: 
  Country: None (occurrence: None)
  Receive Date: 20111031
  Receipt Date: 20111020
  Transmission Date: 20120403
  Serious: Yes (Other)
  Sender: FDA-Public Use
  Company Number: FR-JNJFOC-20110803718

PATIENT
  Age: 35 Year
  Sex: Female
  Weight: 49 kg

DRUGS (7)
  1. ATARAX [Concomitant]
     Indication: PREMEDICATION
     Dates: start: 20110610
  2. ATARAX [Concomitant]
     Dates: start: 20110805
  3. REMICADE [Suspect]
     Route: 042
     Dates: start: 20110610
  4. HEMISUCCINATE HYDROCORTISONE [Concomitant]
     Dates: start: 20110610
  5. REMICADE [Suspect]
     Indication: COLITIS ULCERATIVE
     Dosage: PT RECEIVED A TOTAL OF 7 INFUSIONS
     Route: 042
     Dates: start: 20100101, end: 20100701
  6. REMICADE [Suspect]
     Route: 042
     Dates: start: 20110805
  7. HEMISUCCINATE HYDROCORTISONE [Concomitant]
     Indication: PREMEDICATION
     Dates: start: 20110805

REACTIONS (5)
  - MALAISE [None]
  - CHEST DISCOMFORT [None]
  - CHEST PAIN [None]
  - URTICARIA PAPULAR [None]
  - INFUSION RELATED REACTION [None]
